FAERS Safety Report 25759004 (Version 1)
Quarter: 2025Q3

REPORT INFORMATION
  Report Type: Spontaneous
  Country: GB (occurrence: GB)
  Receive Date: 20250904
  Receipt Date: 20250904
  Transmission Date: 20251020
  Serious: Yes (Hospitalization, Other)
  Sender: NOVITIUM PHARMA
  Company Number: GB-NOVITIUMPHARMA-2025GBNVP02214

PATIENT
  Age: 14 Day
  Sex: Female

DRUGS (12)
  1. HYDROCORTISONE [Suspect]
     Active Substance: HYDROCORTISONE
     Indication: Bronchopulmonary dysplasia
  2. HYDROCORTISONE [Suspect]
     Active Substance: HYDROCORTISONE
     Indication: Prophylaxis
  3. HYDROCORTISONE [Suspect]
     Active Substance: HYDROCORTISONE
  4. CAFFEINE CITRATE [Concomitant]
     Active Substance: CAFFEINE CITRATE
     Indication: Premature baby
  5. AMIKACIN [Concomitant]
     Active Substance: AMIKACIN
  6. PENICILLIN G [Concomitant]
     Active Substance: PENICILLIN G
  7. PIPERACILLIN SODIUM\TAZOBACTAM SODIUM [Concomitant]
     Active Substance: PIPERACILLIN SODIUM\TAZOBACTAM SODIUM
  8. TEICOPLANIN [Concomitant]
     Active Substance: TEICOPLANIN
  9. MEROPENEM [Concomitant]
     Active Substance: MEROPENEM
  10. CLOXACILLIN [Concomitant]
     Active Substance: CLOXACILLIN
  11. DOPAMINE [Concomitant]
     Active Substance: DOPAMINE HYDROCHLORIDE
     Indication: Hypotension
  12. ACETAMINOPHEN [Concomitant]
     Active Substance: ACETAMINOPHEN
     Indication: Patent ductus arteriosus

REACTIONS (1)
  - Hypertrophic cardiomyopathy [Recovered/Resolved]
